FAERS Safety Report 6478430-6 (Version None)
Quarter: 2009Q4

REPORT INFORMATION
  Report Type: 
  Country: None (occurrence: None)
  Receive Date: 20091207
  Receipt Date: 20090129
  Transmission Date: 20100525
  Serious: No
  Sender: FDA-Public Use
  Company Number: US-AMGEN-KDL331170

PATIENT
  Sex: Female

DRUGS (2)
  1. ENBREL [Suspect]
     Indication: RHEUMATOID ARTHRITIS
     Route: 058
     Dates: start: 20080111
  2. METHOTREXATE [Concomitant]
     Route: 048

REACTIONS (2)
  - DERMAL CYST [None]
  - JOINT RANGE OF MOTION DECREASED [None]
